FAERS Safety Report 7650413-X (Version None)
Quarter: 2011Q3

REPORT INFORMATION
  Report Type: 
  Country: None (occurrence: None)
  Receive Date: 20110802
  Receipt Date: 20110714
  Transmission Date: 20111222
  Serious: Yes (Hospitalization)
  Sender: FDA-Public Use
  Company Number: US-GLAXOSMITHKLINE-A0868992A

PATIENT
  Age: 48 Year
  Sex: Female
  Weight: 113.6 kg

DRUGS (15)
  1. AVANDIA [Suspect]
     Indication: DIABETES MELLITUS
     Dosage: 4MG PER DAY
     Route: 048
     Dates: start: 20020801
  2. COMBIVENT [Concomitant]
  3. SEREVENT [Concomitant]
  4. HUMALOG [Concomitant]
  5. SYNTHROID [Concomitant]
  6. PROVENTIL [Concomitant]
  7. ATROVENT [Concomitant]
  8. TOPROL-XL [Concomitant]
  9. VASOTEC [Concomitant]
  10. ZOCOR [Concomitant]
  11. SINGULAIR [Concomitant]
  12. ZYRTEC [Concomitant]
  13. PAXIL [Concomitant]
  14. ALLEGRA [Concomitant]
  15. GLUCOPHAGE [Concomitant]

REACTIONS (2)
  - MYOCARDIAL INFARCTION [None]
  - CARDIAC FAILURE CONGESTIVE [None]
